FAERS Safety Report 9885127 (Version 2)
Quarter: 2014Q1

REPORT INFORMATION
  Report Type: Spontaneous
  Country: US (occurrence: US)
  Receive Date: 20140210
  Receipt Date: 20140221
  Transmission Date: 20141002
  Serious: Yes (Death, Other)
  Sender: FDA-Public Use
  Company Number: US-OTSUKA-US-2014-10230

PATIENT
  Age: 61 Year
  Sex: Male
  Weight: 114.24 kg

DRUGS (12)
  1. SAMSCA [Suspect]
     Indication: HYPONATRAEMIA
     Dosage: UNK, SINGLE
     Dates: start: 20131213, end: 20131213
  2. LASIX [Concomitant]
     Indication: DIURETIC THERAPY
     Dosage: UNK
     Route: 042
     Dates: start: 201312
  3. LASIX [Concomitant]
     Dosage: 40 MG MILLIGRAM(S), DAILY DOSE
     Dates: start: 201312
  4. BUMEX [Concomitant]
     Indication: DIURETIC THERAPY
     Dosage: UNK
     Route: 042
  5. LISINOPRIL [Concomitant]
     Indication: PRODUCT USED FOR UNKNOWN INDICATION
     Dosage: 5 MG MILLIGRAM(S), DAILY DOSE
  6. LIPITOR [Concomitant]
     Indication: PRODUCT USED FOR UNKNOWN INDICATION
     Dosage: 40 MG MILLIGRAM(S), DAILY DOSE
  7. NOVOLOG [Concomitant]
     Indication: PRODUCT USED FOR UNKNOWN INDICATION
     Dosage: 4 UNKNOWN, DAILY DOSE
  8. COUMADIN [Concomitant]
     Indication: PRODUCT USED FOR UNKNOWN INDICATION
     Dosage: 5 MG MILLIGRAM(S), DAILY DOSE
  9. ASPIRIN [Concomitant]
     Indication: PRODUCT USED FOR UNKNOWN INDICATION
     Dosage: 81 MG MILLIGRAM(S), DAILY DOSE
  10. COREG [Concomitant]
     Indication: PRODUCT USED FOR UNKNOWN INDICATION
     Dosage: 3.125 MG MILLIGRAM(S), UNK
  11. EFFIENT [Concomitant]
     Indication: PRODUCT USED FOR UNKNOWN INDICATION
     Dosage: 10 MG MILLIGRAM(S), DAILY DOSE
  12. LANTUS [Concomitant]
     Indication: PRODUCT USED FOR UNKNOWN INDICATION
     Dosage: 32 UNKNOWN, DAILY DOSE

REACTIONS (2)
  - Cardiac failure [Not Recovered/Not Resolved]
  - Cardiac arrest [Fatal]
